FAERS Safety Report 8042931-X (Version None)
Quarter: 2012Q1

REPORT INFORMATION
  Report Type: 
  Country: None (occurrence: None)
  Receive Date: 20120112
  Receipt Date: 20120110
  Transmission Date: 20120608
  Serious: Yes (Other)
  Sender: FDA-Public Use
  Company Number: GB-JNJFOC-20120104151

PATIENT
  Age: 46 Year
  Sex: Female

DRUGS (1)
  1. NICORETTE [Suspect]
     Indication: PRODUCT USED FOR UNKNOWN INDICATION
     Dosage: ON A DAILY BASIS FOR 13 YEARS
     Route: 048
     Dates: start: 19990101

REACTIONS (2)
  - INTENTIONAL DRUG MISUSE [None]
  - TOOTH EROSION [None]
